FAERS Safety Report 17367932 (Version 1)
Quarter: 2020Q1

REPORT INFORMATION
  Report Type: Spontaneous
  Country: US (occurrence: US)
  Receive Date: 20200118
  Receipt Date: 20200118
  Transmission Date: 20200409
  Serious: Yes (Hospitalization)
  Sender: FDA-Public Use
  Company Number: None

PATIENT
  Age: 71 Year
  Sex: Male
  Weight: 154.7 kg

DRUGS (2)
  1. LEUPROLIDE ACETATE. [Suspect]
     Active Substance: LEUPROLIDE ACETATE
     Dates: end: 20190117
  2. CASODEX [Suspect]
     Active Substance: BICALUTAMIDE
     Dates: end: 20170905

REACTIONS (5)
  - Bradycardia [None]
  - Fatigue [None]
  - Pleural effusion [None]
  - Atrial flutter [None]
  - Atrioventricular block second degree [None]

NARRATIVE: CASE EVENT DATE: 20191126
